FAERS Safety Report 5403757-6 (Version None)
Quarter: 2007Q3

REPORT INFORMATION
  Report Type: 
  Country: None (occurrence: None)
  Receive Date: 20070802
  Receipt Date: 20070726
  Transmission Date: 20080115
  Serious: Yes (Hospitalization)
  Sender: FDA-Public Use
  Company Number: DE-BAXTER-2006BH015255

PATIENT
  Age: 36 Year
  Sex: Male
  Weight: 80 kg

DRUGS (11)
  1. FEIBA VH IMMUNO [Suspect]
     Indication: HAEMOPHILIA B WITH ANTI FACTOR IX
     Route: 065
     Dates: start: 20061001, end: 20061201
  2. FEIBA VH IMMUNO [Suspect]
     Indication: HAEMORRHAGE
     Route: 065
     Dates: start: 20061001, end: 20061201
  3. FEIBA VH IMMUNO [Suspect]
     Route: 065
     Dates: start: 20060101
  4. FEIBA VH IMMUNO [Suspect]
     Route: 065
     Dates: start: 20060101
  5. FEIBA VH IMMUNO [Suspect]
     Route: 065
     Dates: start: 20060101
  6. FEIBA VH IMMUNO [Suspect]
     Route: 065
     Dates: start: 20060101
  7. FEIBA VH IMMUNO [Suspect]
     Route: 065
     Dates: start: 20070101
  8. FEIBA VH IMMUNO [Suspect]
     Route: 065
     Dates: start: 20070101
  9. FEIBA NF [Suspect]
     Indication: HAEMOPHILIA B WITH ANTI FACTOR IX
     Route: 065
     Dates: start: 20061217, end: 20061218
  10. FEIBA NF [Suspect]
     Indication: HAEMORRHAGE
     Route: 065
     Dates: start: 20061217, end: 20061218
  11. CIPROFLOXACIN [Concomitant]
     Indication: BRONCHITIS
     Route: 048
     Dates: start: 20061209, end: 20061227

REACTIONS (2)
  - CAPILLARY LEAK SYNDROME [None]
  - CHILLS [None]
